FAERS Safety Report 14441091 (Version 1)
Quarter: 2018Q1

REPORT INFORMATION
  Report Type: Report from Study
  Country: US (occurrence: US)
  Receive Date: 20180125
  Receipt Date: 20180125
  Transmission Date: 20180509
  Serious: Yes (Hospitalization)
  Sender: FDA-Public Use
  Company Number: US-JNJFOC-20120105381

PATIENT
  Age: 38 Year
  Sex: Male

DRUGS (1)
  1. INVEGA SUSTENNA [Suspect]
     Active Substance: PALIPERIDONE PALMITATE
     Indication: SCHIZOPHRENIA
     Route: 030
     Dates: start: 20110721, end: 20110927

REACTIONS (3)
  - Drug dose omission [Not Recovered/Not Resolved]
  - Adverse event [Not Recovered/Not Resolved]
  - Emergency care [Unknown]

NARRATIVE: CASE EVENT DATE: 20110927
